FAERS Safety Report 5781893-2 (Version None)
Quarter: 2008Q2

REPORT INFORMATION
  Report Type: 
  Country: None (occurrence: None)
  Receive Date: 20080623
  Receipt Date: 20080618
  Transmission Date: 20081010
  Serious: Yes (Life-Threatening, Other)
  Sender: FDA-Public Use
  Company Number: A0733692A

PATIENT
  Age: 56 Year
  Sex: Female

DRUGS (3)
  1. TYKERB [Suspect]
     Indication: BREAST CANCER
     Dosage: 1250MG PER DAY
     Route: 048
     Dates: start: 20071001, end: 20080101
  2. TAXOTERE [Concomitant]
  3. XELODA [Concomitant]

REACTIONS (1)
  - DYSPNOEA [None]
